FAERS Safety Report 6898750-0 (Version None)
Quarter: 2010Q3

REPORT INFORMATION
  Report Type: 
  Country: None (occurrence: None)
  Receive Date: 20100802
  Receipt Date: 20071127
  Transmission Date: 20110219
  Serious: No
  Sender: FDA-Public Use
  Company Number: US-PFIZER INC-2007096785

PATIENT
  Sex: Female
  Weight: 52.727 kg

DRUGS (9)
  1. LYRICA [Suspect]
     Indication: FIBROMYALGIA
     Dates: start: 20071027
  2. LORTAB [Concomitant]
  3. WELLBUTRIN SR [Concomitant]
  4. PREVACID [Concomitant]
  5. CLONAZEPAM [Concomitant]
  6. ADVAIR DISKUS 100/50 [Concomitant]
  7. MAXALT [Concomitant]
     Indication: MIGRAINE
  8. NASONEX [Concomitant]
     Indication: SINUSITIS
  9. ASTHALIN [Concomitant]
     Indication: SINUSITIS

REACTIONS (5)
  - DISTURBANCE IN ATTENTION [None]
  - HEADACHE [None]
  - MEMORY IMPAIRMENT [None]
  - MIGRAINE [None]
  - UNEVALUABLE EVENT [None]
